FAERS Safety Report 9098868 (Version 1)
Quarter: 2013Q1

REPORT INFORMATION
  Report Type: Report from Study
  Country: US (occurrence: US)
  Receive Date: 20130213
  Receipt Date: 20130213
  Transmission Date: 20140127
  Serious: No
  Sender: FDA-Public Use
  Company Number: US-VERTEX PHARMACEUTICALS INC.-2013-001924

PATIENT
  Sex: Male
  Weight: 88 kg

DRUGS (8)
  1. VX-950 (TELAPREVIR) [Suspect]
     Indication: HEPATITIS C
     Dosage: 750 MG, TID
     Route: 048
     Dates: start: 20121201
  2. PEGASYS [Suspect]
     Indication: HEPATITIS C
     Dosage: 180 ?G, QW
     Route: 058
     Dates: start: 20121201
  3. RIBAPAK [Suspect]
     Indication: HEPATITIS C
     Dosage: 600 MG, BID
     Route: 048
     Dates: start: 20121201
  4. LISINOPRIL [Concomitant]
     Dosage: 5 MG, QD
     Route: 048
     Dates: start: 20120924
  5. IBUPROFEN [Concomitant]
     Dosage: 200 MG, PRN
     Route: 048
     Dates: start: 20120924
  6. DOXYCYCLINE HYCLATE [Concomitant]
     Dosage: 1 DF, QD
     Route: 048
     Dates: start: 20120924
  7. ZANTAC [Concomitant]
     Dosage: 150 MG, PRN
     Route: 048
  8. TYLENOL [Concomitant]
     Dosage: 325 MG, PRN
     Route: 048

REACTIONS (6)
  - Dyspnoea [Unknown]
  - Influenza like illness [Unknown]
  - Constipation [Unknown]
  - Fatigue [Unknown]
  - Red blood cell count decreased [Unknown]
  - Diarrhoea [Unknown]
